FAERS Safety Report 20096770 (Version 1)
Quarter: 2021Q4

REPORT INFORMATION
  Report Type: Spontaneous
  Country: US (occurrence: US)
  Receive Date: 20211122
  Receipt Date: 20211122
  Transmission Date: 20220304
  Serious: No
  Sender: FDA-Public Use
  Company Number: US-PFIZER INC-2021476203

PATIENT
  Sex: Female

DRUGS (2)
  1. CELEBREX [Suspect]
     Active Substance: CELECOXIB
     Indication: Pain
     Dosage: 200 MG
  2. CELEBREX [Suspect]
     Active Substance: CELECOXIB
     Indication: Surgery

REACTIONS (2)
  - Oral candidiasis [Unknown]
  - Rash [Unknown]
